FAERS Safety Report 6615609-4 (Version None)
Quarter: 2010Q1

REPORT INFORMATION
  Report Type: 
  Country: None (occurrence: None)
  Receive Date: 20100305
  Receipt Date: 20100225
  Transmission Date: 20100710
  Serious: Yes (Hospitalization)
  Sender: FDA-Public Use
  Company Number: FR-ROCHE-685633

PATIENT
  Sex: Female
  Weight: 61 kg

DRUGS (3)
  1. CAPECITABINE [Suspect]
     Indication: BREAST CANCER
     Dosage: DOSE: 825 MG/M2 2X/DAY, DAY 1- 14
     Route: 048
     Dates: start: 20091102, end: 20100208
  2. TAXOTERE [Suspect]
     Indication: BREAST CANCER
     Dosage: SCHEDULED 75 MG/M2
     Route: 042
     Dates: start: 20091102, end: 20100127
  3. IMOVANE [Concomitant]
     Indication: INSOMNIA
     Dates: start: 20090201

REACTIONS (1)
  - FISTULA [None]
